FAERS Safety Report 13945733 (Version 1)
Quarter: 2017Q3

REPORT INFORMATION
  Report Type: Spontaneous
  Country: DE (occurrence: DE)
  Receive Date: 20170907
  Receipt Date: 20170907
  Transmission Date: 20171128
  Serious: Yes (Death, Hospitalization, Other)
  Sender: FDA-Public Use
  Company Number: DE-TORRENT-00007036

PATIENT
  Age: 22 Year
  Sex: Female

DRUGS (3)
  1. QUETIAPINE. [Suspect]
     Active Substance: QUETIAPINE
  2. CEFUROXIME. [Concomitant]
     Active Substance: CEFUROXIME
  3. LORAZEPAM. [Concomitant]
     Active Substance: LORAZEPAM

REACTIONS (6)
  - Multiple organ dysfunction syndrome [Fatal]
  - Pharyngitis [Not Recovered/Not Resolved]
  - Sepsis [Fatal]
  - Agranulocytosis [Fatal]
  - Cardiopulmonary failure [Fatal]
  - Metabolic acidosis [Unknown]
